FAERS Safety Report 5800031-0 (Version None)
Quarter: 2008Q3

REPORT INFORMATION
  Report Type: 
  Country: None (occurrence: None)
  Receive Date: 20080701
  Receipt Date: 20080617
  Transmission Date: 20090109
  Serious: Yes (Hospitalization)
  Sender: FDA-Public Use
  Company Number: 2008BI013226

PATIENT
  Age: 60 Year
  Sex: Female

DRUGS (1)
  1. AVONEX [Suspect]
     Indication: MULTIPLE SCLEROSIS
     Dosage: 30 UG; QW; IM
     Route: 030
     Dates: start: 20050101

REACTIONS (7)
  - BALANCE DISORDER [None]
  - FALL [None]
  - FRACTURED COCCYX [None]
  - FRACTURED SACRUM [None]
  - PARAPARESIS [None]
  - PERIPHERAL SENSORY NEUROPATHY [None]
  - VITAMIN B12 DEFICIENCY [None]
